FAERS Safety Report 5092700-8 (Version None)
Quarter: 2006Q3

REPORT INFORMATION
  Report Type: 
  Country: None (occurrence: None)
  Receive Date: 20060727
  Receipt Date: 20060531
  Transmission Date: 20061208
  Serious: Yes (Other)
  Sender: FDA-Public Use
  Company Number: 2006070466

PATIENT
  Age: 71 Year
  Sex: Male

DRUGS (4)
  1. LYRICA [Suspect]
     Indication: NEUROPATHY PERIPHERAL
     Dosage: 300 MG (150 MG, 2 IN 1 D)
     Dates: start: 20060201
  2. CRESTOR [Concomitant]
  3. VALSARTAN [Concomitant]
  4. VERAPAMIL [Concomitant]

REACTIONS (1)
  - WEIGHT INCREASED [None]
